FAERS Safety Report 4374168-X (Version None)
Quarter: 2004Q2

REPORT INFORMATION
  Report Type: 
  Country: None (occurrence: None)
  Receive Date: 20040607
  Receipt Date: 20020402
  Transmission Date: 20050107
  Serious: Yes (Hospitalization, Disabling, Other)
  Sender: FDA-Public Use
  Company Number: US-MERCK-0204USA00382

PATIENT
  Age: 61 Year
  Sex: Male
  Weight: 85 kg

DRUGS (14)
  1. PROVENTIL [Concomitant]
     Route: 065
  2. ASPIRIN [Concomitant]
     Indication: PROPHYLAXIS
     Route: 065
     Dates: start: 19860701
  3. ASPIRIN [Concomitant]
     Route: 065
  4. COREG [Concomitant]
     Indication: CARDIAC DISORDER
     Route: 065
  5. FOLTX [Concomitant]
     Route: 065
  6. ZESTRIL [Concomitant]
     Route: 065
  7. NIASPAN [Concomitant]
     Indication: CARDIAC DISORDER
     Route: 065
  8. PRAVACHOL [Concomitant]
     Route: 048
     Dates: start: 20001019, end: 20010308
  9. PRAVACHOL [Concomitant]
     Route: 048
     Dates: start: 20010309, end: 20010101
  10. METAMUCIL-2 [Concomitant]
     Route: 065
  11. VIOXX [Suspect]
     Indication: PAIN IN EXTREMITY
     Route: 048
     Dates: start: 20010227, end: 20010101
  12. VIOXX [Suspect]
     Route: 048
     Dates: start: 20010101, end: 20010705
  13. VIOXX [Suspect]
     Indication: TENDONITIS
     Route: 048
     Dates: start: 20010227, end: 20010101
  14. VIOXX [Suspect]
     Route: 048
     Dates: start: 20010101, end: 20010705

REACTIONS (11)
  - ABDOMINAL PAIN LOWER [None]
  - CARPAL TUNNEL SYNDROME [None]
  - DIVERTICULAR PERFORATION [None]
  - DIVERTICULITIS [None]
  - EMOTIONAL DISTRESS [None]
  - HYPOKALAEMIA [None]
  - MEMORY IMPAIRMENT [None]
  - MUSCLE CRAMP [None]
  - PYREXIA [None]
  - UMBILICAL HERNIA [None]
  - VENTRICULAR TACHYCARDIA [None]
